FAERS Safety Report 9000994 (Version 1)
Quarter: 2013Q1

REPORT INFORMATION
  Report Type: Spontaneous
  Country: US (occurrence: None)
  Receive Date: 20130103
  Receipt Date: 20130103
  Transmission Date: 20140127
  Serious: Yes (Disabling)
  Sender: FDA-Public Use
  Company Number: None

PATIENT
  Age: 52 Year
  Sex: Female
  Weight: 95.26 kg

DRUGS (2)
  1. FENTANYL [Suspect]
     Indication: ARTHRALGIA
     Dosage: 200 MCG  EVERY 48 HOURS CHA  TRANSDERMAL
     Route: 062
     Dates: start: 20120515, end: 20121115
  2. FENTANYL [Suspect]
     Indication: BACK PAIN
     Dosage: 200 MCG  EVERY 48 HOURS CHA  TRANSDERMAL
     Route: 062
     Dates: start: 20120515, end: 20121115

REACTIONS (5)
  - Dizziness [None]
  - Dyspnoea [None]
  - Economic problem [None]
  - Fall [None]
  - Loss of control of legs [None]
